FAERS Safety Report 6674939-0 (Version None)
Quarter: 2010Q1

REPORT INFORMATION
  Report Type: 
  Country: None (occurrence: None)
  Receive Date: 20100331
  Receipt Date: 20091204
  Transmission Date: 20100710
  Serious: Yes (Other)
  Sender: FDA-Public Use
  Company Number: 2009286477

PATIENT

DRUGS (2)
  1. SUTENT [Suspect]
  2. METFORMIN HCL [Concomitant]

REACTIONS (1)
  - NEPHROTIC SYNDROME [None]
